FAERS Safety Report 5563008-9 (Version None)
Quarter: 2007Q4

REPORT INFORMATION
  Report Type: 
  Country: None (occurrence: None)
  Receive Date: 20071217
  Receipt Date: 20071204
  Transmission Date: 20080405
  Serious: Yes (Death, Other)
  Sender: FDA-Public Use
  Company Number: JP-AVENTIS-200712754JP

PATIENT
  Age: 29 Year
  Sex: Male

DRUGS (2)
  1. LASIX [Suspect]
     Route: 042
  2. UNKNOWN DRUG [Concomitant]

REACTIONS (3)
  - DISSEMINATED INTRAVASCULAR COAGULATION [None]
  - LEUKOPENIA [None]
  - SEPSIS [None]
